FAERS Safety Report 5988280-2 (Version None)
Quarter: 2008Q4

REPORT INFORMATION
  Report Type: 
  Country: None (occurrence: None)
  Receive Date: 20081210
  Receipt Date: 20081128
  Transmission Date: 20090506
  Serious: Yes (Other)
  Sender: FDA-Public Use
  Company Number: JP-PFIZER INC-2008101476

PATIENT

DRUGS (5)
  1. PROVERA [Suspect]
     Indication: OFF LABEL USE
     Route: 048
     Dates: start: 20080401, end: 20080701
  2. PROVERA [Suspect]
     Indication: ANOVULATORY CYCLE
  3. PREMARIN [Suspect]
     Indication: ANOVULATORY CYCLE
     Route: 048
     Dates: start: 20080401, end: 20080701
  4. CLOMID [Suspect]
     Indication: ANOVULATORY CYCLE
     Route: 048
  5. NORLUTEN [Suspect]
     Indication: ANOVULATORY CYCLE
     Route: 048

REACTIONS (1)
  - RETINAL VASCULAR THROMBOSIS [None]
